FAERS Safety Report 8077825-7 (Version None)
Quarter: 2012Q1

REPORT INFORMATION
  Report Type: 
  Country: None (occurrence: None)
  Receive Date: 20120127
  Receipt Date: 20120119
  Transmission Date: 20120608
  Serious: Yes (Hospitalization)
  Sender: FDA-Public Use
  Company Number: FR-PFIZER INC-K201101018

PATIENT
  Age: 83 Year
  Sex: Male

DRUGS (11)
  1. NITROGLYCERIN [Suspect]
     Dosage: 5 MG, 1X/DAY
     Route: 062
     Dates: end: 20110702
  2. RAMIPRIL [Suspect]
     Dosage: 2.5 MG, 2X/DAY
     Route: 048
     Dates: end: 20110630
  3. NEXIUM [Concomitant]
     Dosage: 1 DF, 1X/DAY
  4. AMLODIPINE BESYLATE [Suspect]
     Dosage: 5 MG, 2X/DAY
     Route: 048
     Dates: end: 20110630
  5. VALSARTAN  AND HYDROCHLOROTHIAZIDE [Suspect]
     Dosage: 1 DF, 1X/DAY
     Route: 048
     Dates: start: 20110201, end: 20110719
  6. PRAVASTATIN [Suspect]
     Dosage: 40 MG, 1X/DAY
     Route: 048
     Dates: end: 20110702
  7. ATARAX [Concomitant]
     Dosage: 25 MG, BID (AS NEEDED)
  8. PLAVIX [Concomitant]
     Dosage: 75 MG, 1X/DAY
  9. ASPIRIN [Concomitant]
     Dosage: 160 MG, 1X/DAY
  10. MOVIPREP [Concomitant]
     Dosage: 3 DF, QD (AS NEEDED)
  11. METOPROLOL TARTRATE [Concomitant]
     Dosage: 0.25 MG, 2X/DAY
     Route: 048

REACTIONS (9)
  - ECZEMA [None]
  - CULTURE URINE POSITIVE [None]
  - PRURITUS [None]
  - STAPHYLOCOCCAL BACTERAEMIA [None]
  - ENDOCARDITIS [None]
  - DRY SKIN [None]
  - SKIN LESION [None]
  - ACUTE PULMONARY OEDEMA [None]
  - SKIN PLAQUE [None]
